FAERS Safety Report 9377224 (Version 2)
Quarter: 2013Q3

REPORT INFORMATION
  Report Type: Not Available
  Country: IT (occurrence: IT)
  Receive Date: 20130701
  Receipt Date: 20130827
  Transmission Date: 20140515
  Serious: Yes (Hospitalization)
  Sender: FDA-Public Use
  Company Number: IT-ASTELLAS-2013EU005442

PATIENT
  Age: 42 Year
  Sex: Female

DRUGS (5)
  1. PROGRAF [Suspect]
     Indication: LIVER TRANSPLANT
     Dosage: 4 MG, UNKNOWN/D
     Route: 048
     Dates: start: 20111218, end: 20130620
  2. CERTICAN [Suspect]
     Indication: LIVER TRANSPLANT
     Dosage: 5 MG, UNKNOWN/D
     Route: 048
     Dates: start: 20120102, end: 20130620
  3. LIMPIDEX [Concomitant]
     Indication: OESOPHAGITIS
     Dosage: 1 DF, UNKNOWN/D
     Route: 048
     Dates: start: 20120413, end: 20130205
  4. HUMALOG [Concomitant]
     Indication: DIABETES MELLITUS
     Dosage: 14 DF, UNKNOWN/D
     Route: 058
     Dates: start: 20120413, end: 20130205
  5. DEURSIL [Concomitant]
     Indication: CHOLELITHIASIS
     Dosage: 300 MG, UNKNOWN/D
     Route: 048
     Dates: start: 20120413, end: 20120813

REACTIONS (1)
  - Hypertransaminasaemia [Recovered/Resolved with Sequelae]
